FAERS Safety Report 18967397 (Version 5)
Quarter: 2022Q1

REPORT INFORMATION
  Report Type: Report from Study
  Country: US (occurrence: US)
  Receive Date: 20210303
  Receipt Date: 20220325
  Transmission Date: 20220423
  Serious: Yes (Hospitalization, Other)
  Sender: FDA-Public Use
  Company Number: US-SEATTLE GENETICS-2020SGN05121

PATIENT
  Age: 68 Year
  Sex: Female
  Weight: 55.782 kg

DRUGS (14)
  1. TUCATINIB [Suspect]
     Active Substance: TUCATINIB
     Indication: Breast cancer metastatic
     Dosage: UNK
     Route: 065
     Dates: start: 20200902
  2. TUCATINIB [Suspect]
     Active Substance: TUCATINIB
     Dosage: 50 MG, UNK
     Route: 065
     Dates: start: 20201116
  3. TUCATINIB [Suspect]
     Active Substance: TUCATINIB
     Dosage: 200 MG, BID
     Route: 065
  4. TUCATINIB [Suspect]
     Active Substance: TUCATINIB
     Dosage: 150 MG
     Route: 065
     Dates: end: 202201
  5. APIXABAN [Concomitant]
     Active Substance: APIXABAN
  6. CAPECITABINE [Concomitant]
     Active Substance: CAPECITABINE
  7. TRASTUZUMAB [Concomitant]
     Active Substance: TRASTUZUMAB
  8. LOMOTIL                            /00034001/ [Concomitant]
  9. GABAPENTIN [Concomitant]
     Active Substance: GABAPENTIN
  10. MIRTAZAPINE [Concomitant]
     Active Substance: MIRTAZAPINE
  11. ONDANSETRON [Concomitant]
     Active Substance: ONDANSETRON
  12. POTASSIUM CHLORIDE [Concomitant]
     Active Substance: POTASSIUM CHLORIDE
  13. TORSEMIDE [Concomitant]
     Active Substance: TORSEMIDE
  14. SPIRONOLACTONE [Concomitant]
     Active Substance: SPIRONOLACTONE

REACTIONS (7)
  - Sepsis [Unknown]
  - Hypokalaemia [Recovered/Resolved]
  - Dehydration [Recovered/Resolved]
  - Presyncope [Recovered/Resolved]
  - Device related infection [Recovered/Resolved]
  - Flatulence [Recovered/Resolved]
  - Product dose omission issue [Unknown]

NARRATIVE: CASE EVENT DATE: 20201201
